FAERS Safety Report 9276081 (Version 1)
Quarter: 2012Q4

REPORT INFORMATION
  Report Type: Spontaneous
  Country: US (occurrence: None)
  Receive Date: 20121109
  Receipt Date: 20121109
  Transmission Date: 20130627
  Serious: Yes (Death)
  Sender: FDA-Public Use
  Company Number: 2012S1000164

PATIENT
  Age: 60 Year
  Sex: Male
  Weight: 81 kg

DRUGS (1)
  1. CUBICIN [Suspect]
     Indication: VANCOMYCIN-RESISTANT ENTEROCOCCAL INFECTION
     Dosage: 5 MG/ KG ; Q48H ; IV 3 DAYS
     Route: 042

REACTIONS (1)
  - Death [None]
